FAERS Safety Report 8025212-X (Version None)
Quarter: 2012Q1

REPORT INFORMATION
  Report Type: 
  Country: None (occurrence: None)
  Receive Date: 20120105
  Receipt Date: 20120102
  Transmission Date: 20120608
  Serious: Yes (Hospitalization)
  Sender: FDA-Public Use
  Company Number: DE-GLAXOSMITHKLINE-D0073380A

PATIENT
  Sex: Male

DRUGS (4)
  1. LACOSAMIDE [Concomitant]
     Indication: EPILEPSY
     Dosage: 200MG TWICE PER DAY
     Route: 048
  2. TROBALT [Suspect]
     Indication: EPILEPSY
     Dosage: 50MG PER DAY
     Route: 048
     Dates: start: 20110526, end: 20110530
  3. KEPPRA [Concomitant]
     Indication: EPILEPSY
     Dosage: 1750MG TWICE PER DAY
     Route: 048
  4. TRILEPTAL [Concomitant]
     Indication: EPILEPSY
     Dosage: 2400MG PER DAY
     Route: 048

REACTIONS (1)
  - CARDIAC ARREST [None]
